FAERS Safety Report 11969806 (Version 1)
Quarter: 2016Q1

REPORT INFORMATION
  Report Type: Spontaneous
  Country: FR (occurrence: FR)
  Receive Date: 20160128
  Receipt Date: 20160128
  Transmission Date: 20160526
  Serious: Yes (Life-Threatening, Hospitalization)
  Sender: FDA-Public Use
  Company Number: FR-SUN PHARMACEUTICAL INDUSTRIES LTD-2016R1-110509

PATIENT
  Age: 13 Year
  Sex: Male

DRUGS (2)
  1. IMIPENEM [Suspect]
     Active Substance: IMIPENEM
     Indication: BACTERIAL INFECTION
     Dosage: 80 MG/KG, DAILY (IN 3 INJECTIONS)
     Route: 042
  2. SULPHAMETHOXAZOLE/TRIMETHOPRIM [Suspect]
     Active Substance: SULFAMETHOXAZOLE\TRIMETHOPRIM
     Indication: BACTERIAL INFECTION
     Dosage: UNK
     Route: 065

REACTIONS (3)
  - Drug ineffective [Unknown]
  - Condition aggravated [Unknown]
  - Drug resistance [Unknown]
